FAERS Safety Report 13285798 (Version 1)
Quarter: 2017Q1

REPORT INFORMATION
  Report Type: Report from Study
  Country: US (occurrence: US)
  Receive Date: 20170301
  Receipt Date: 20170301
  Transmission Date: 20170428
  Serious: Yes (Other)
  Sender: FDA-Public Use
  Company Number: US-ALLERGAN-1703012US

PATIENT
  Age: 30 Year
  Sex: Female
  Weight: 86.6 kg

DRUGS (1)
  1. LINACLOTIDE 145MCG CAP (TBD) [Suspect]
     Active Substance: LINACLOTIDE
     Indication: IRRITABLE BOWEL SYNDROME
     Dosage: UNK UNK, QD
     Route: 048
     Dates: start: 20160412, end: 20170124

REACTIONS (3)
  - Abortion spontaneous [Recovered/Resolved]
  - Pregnancy [Unknown]
  - Maternal exposure timing unspecified [None]

NARRATIVE: CASE EVENT DATE: 20170117
